FAERS Safety Report 9151943 (Version 1)
Quarter: 2013Q1

REPORT INFORMATION
  Report Type: Spontaneous
  Country: US (occurrence: US)
  Receive Date: 20130308
  Receipt Date: 20130308
  Transmission Date: 20140127
  Serious: No
  Sender: FDA-Public Use
  Company Number: US-GLAXOSMITHKLINE-A1003492A

PATIENT
  Age: 55 Year
  Sex: Male

DRUGS (2)
  1. WALGREENS LOZENGE CHERRY 4 MG [Suspect]
     Indication: EX-TOBACCO USER
  2. NICODERM CQ [Suspect]
     Indication: EX-TOBACCO USER

REACTIONS (2)
  - Abdominal distension [Not Recovered/Not Resolved]
  - Application site irritation [Not Recovered/Not Resolved]
